FAERS Safety Report 18264530 (Version 2)
Quarter: 2021Q4

REPORT INFORMATION
  Report Type: Spontaneous
  Country: US (occurrence: US)
  Receive Date: 20200914
  Receipt Date: 20211223
  Transmission Date: 20220303
  Serious: No
  Sender: FDA-Public Use
  Company Number: US-ARRAY-2019-05758

PATIENT
  Age: 74 Year
  Sex: Male

DRUGS (4)
  1. MEKTOVI [Suspect]
     Active Substance: BINIMETINIB
     Indication: Thyroid cancer
     Dosage: 45 MG, 2X/DAY
     Route: 048
     Dates: start: 20190115
  2. MEKTOVI [Suspect]
     Active Substance: BINIMETINIB
     Indication: Anaplastic thyroid cancer
     Dosage: 3 DF, 2X/DAY (3 TABLETS TWICE DAILY BY MOUTH)
     Route: 048
     Dates: start: 201902
  3. BRAFTOVI [Suspect]
     Active Substance: ENCORAFENIB
     Indication: Thyroid cancer
     Dosage: 450 MG, 1X/DAY
     Route: 048
     Dates: start: 20190115
  4. BRAFTOVI [Suspect]
     Active Substance: ENCORAFENIB
     Indication: Anaplastic thyroid cancer
     Dosage: 6 DF, 1X/DAY (6 CAPSULES EVERY MORNING BY MOUTH)
     Route: 048
     Dates: start: 201902

REACTIONS (4)
  - Rash pruritic [Unknown]
  - Off label use [Unknown]
  - Product use in unapproved indication [Unknown]
  - Urinary tract infection [Not Recovered/Not Resolved]

NARRATIVE: CASE EVENT DATE: 20190115
